FAERS Safety Report 19704060 (Version 1)
Quarter: 2021Q3

REPORT INFORMATION
  Report Type: Spontaneous
  Country: US (occurrence: US)
  Receive Date: 20210814
  Receipt Date: 20210814
  Transmission Date: 20211014
  Serious: Yes (Life-Threatening, Hospitalization)
  Sender: FDA-Public Use
  Company Number: None

PATIENT
  Age: 41 Year
  Sex: Female
  Weight: 63 kg

DRUGS (1)
  1. FLUDROCORTISONE [Suspect]
     Active Substance: FLUDROCORTISONE
     Route: 048
     Dates: start: 20210528, end: 20210728

REACTIONS (5)
  - Intentional overdose [None]
  - Burns second degree [None]
  - Memory impairment [None]
  - Psychotic behaviour [None]
  - Muscular weakness [None]

NARRATIVE: CASE EVENT DATE: 20210607
